FAERS Safety Report 4940770-7 (Version None)
Quarter: 2006Q1

REPORT INFORMATION
  Report Type: 
  Country: None (occurrence: None)
  Receive Date: 20060313
  Receipt Date: 20060227
  Transmission Date: 20060701
  Serious: Yes (Hospitalization)
  Sender: FDA-Public Use
  Company Number: US-AMGEN-US168631

PATIENT
  Sex: Female
  Weight: 96.2 kg

DRUGS (19)
  1. ARANESP [Suspect]
     Indication: RENAL TRANSPLANT
     Route: 058
     Dates: start: 20051020, end: 20060210
  2. CELLCEPT [Concomitant]
  3. PREDNISONE [Concomitant]
  4. LASIX [Concomitant]
  5. SYNTHROID [Concomitant]
  6. PREMARIN [Concomitant]
  7. AVAPRO [Concomitant]
  8. CARDIZEM [Concomitant]
  9. ACIPHEX [Concomitant]
  10. PRAVACHOL [Concomitant]
  11. CLARINEX [Concomitant]
  12. FOSAMAX [Concomitant]
  13. RAPAMUNE [Concomitant]
  14. ZAROXOLYN [Concomitant]
  15. POTASSIUM CHLORIDE [Concomitant]
  16. CHROMAGEN FORTE [Concomitant]
     Dates: start: 20051001
  17. ZETIA [Concomitant]
  18. CLONAZEPAM [Concomitant]
  19. NEURONTIN [Concomitant]

REACTIONS (3)
  - DYSPNOEA [None]
  - HAEMOGLOBIN DECREASED [None]
  - THERAPEUTIC RESPONSE DECREASED [None]
